FAERS Safety Report 20510939 (Version 1)
Quarter: 2022Q1

REPORT INFORMATION
  Report Type: Spontaneous
  Country: JP (occurrence: JP)
  Receive Date: 20220224
  Receipt Date: 20220224
  Transmission Date: 20220423
  Serious: Yes (Hospitalization, Other)
  Sender: FDA-Public Use
  Company Number: None

PATIENT
  Age: 51 Year
  Sex: Female

DRUGS (8)
  1. PREDNISOLONE [Suspect]
     Active Substance: PREDNISOLONE
     Indication: Fibromyalgia
     Dosage: 10 MILLIGRAM, PER DAY
     Route: 065
  2. PREDNISOLONE [Suspect]
     Active Substance: PREDNISOLONE
     Indication: Systemic lupus erythematosus
  3. METHOTREXATE [Suspect]
     Active Substance: METHOTREXATE
     Indication: Fibromyalgia
     Dosage: 4 MILLIGRAM PER WEEK
     Route: 065
  4. METHOTREXATE [Suspect]
     Active Substance: METHOTREXATE
     Indication: Systemic lupus erythematosus
  5. SULFASALAZINE [Concomitant]
     Active Substance: SULFASALAZINE
     Indication: Fibromyalgia
     Dosage: 1000 MILLIGRAM, PER DAY
     Route: 065
  6. SULFASALAZINE [Concomitant]
     Active Substance: SULFASALAZINE
     Indication: Systemic lupus erythematosus
  7. MIZORIBINE [Concomitant]
     Active Substance: MIZORIBINE
     Indication: Fibromyalgia
     Dosage: 150 MILLIGRAM PER DAY
     Route: 065
  8. MIZORIBINE [Concomitant]
     Active Substance: MIZORIBINE
     Indication: Systemic lupus erythematosus

REACTIONS (7)
  - Foreign body reaction [Recovered/Resolved]
  - Suture related complication [Recovered/Resolved]
  - Gait disturbance [Recovered/Resolved]
  - Joint abscess [Recovered/Resolved]
  - Infective tenosynovitis [Recovered/Resolved]
  - Enterococcal infection [Recovered/Resolved]
  - Off label use [Unknown]
